FAERS Safety Report 20085339 (Version 1)
Quarter: 2021Q4

REPORT INFORMATION
  Report Type: Spontaneous
  Country: CN (occurrence: None)
  Receive Date: 20211118
  Receipt Date: 20211118
  Transmission Date: 20220303
  Serious: Yes (Other)
  Sender: FDA-Public Use
  Company Number: 2021A806857

PATIENT
  Age: 27155 Day
  Sex: Female
  Weight: 58.2 kg

DRUGS (1)
  1. DAPAGLIFLOZIN [Suspect]
     Active Substance: DAPAGLIFLOZIN
     Indication: Diabetes mellitus
     Route: 048
     Dates: start: 20210930, end: 20211025

REACTIONS (2)
  - Vulvovaginal pruritus [Recovering/Resolving]
  - Genital burning sensation [Recovering/Resolving]

NARRATIVE: CASE EVENT DATE: 20211025
